FAERS Safety Report 5222407-5 (Version None)
Quarter: 2007Q1

REPORT INFORMATION
  Report Type: 
  Country: None (occurrence: None)
  Receive Date: 20070129
  Receipt Date: 20060731
  Transmission Date: 20070707
  Serious: Yes (Disabling, Other)
  Sender: FDA-Public Use
  Company Number: US-BRISTOL-MYERS SQUIBB COMPANY-13434105

PATIENT
  Age: 29 Year
  Sex: Male

DRUGS (4)
  1. DESYREL [Suspect]
     Indication: SLEEP DISORDER
     Dosage: DOSE VALUE:  1 OR 2 AT BEDTIME
     Route: 048
     Dates: start: 19980101, end: 20010615
  2. DESYREL [Suspect]
     Indication: DEPRESSION
     Dosage: DOSE VALUE:  1 OR 2 AT BEDTIME
     Route: 048
     Dates: start: 19980101, end: 20010615
  3. EFFEXOR XR [Concomitant]
     Indication: DEPRESSION
     Dates: start: 20001103
  4. GEODON [Concomitant]
     Dates: start: 20010426

REACTIONS (1)
  - PRIAPISM [None]
